FAERS Safety Report 5547263-7 (Version None)
Quarter: 2007Q4

REPORT INFORMATION
  Report Type: 
  Country: None (occurrence: None)
  Receive Date: 20071211
  Receipt Date: 20071130
  Transmission Date: 20080405
  Serious: Yes (Other)
  Sender: FDA-Public Use
  Company Number: B0498957A

PATIENT
  Age: 58 Year
  Sex: Female

DRUGS (14)
  1. AMOXICILLIN + CLAVULANATE POTASSIUM [Suspect]
     Indication: BACTERIAL INFECTION
     Route: 048
     Dates: start: 20071106, end: 20071115
  2. DEXIBUPROFEN [Suspect]
     Route: 048
  3. MARCUMAR [Concomitant]
     Indication: PULMONARY EMBOLISM
     Route: 048
  4. MORPHINE HCL ELIXIR [Concomitant]
     Route: 065
  5. DURAGESIC-100 [Concomitant]
     Dosage: 100MG TWENTY FOUR TIMES PER DAY
     Route: 062
  6. ELTROXIN [Concomitant]
     Dosage: 100UG PER DAY
     Route: 048
  7. INDERAL [Concomitant]
     Dosage: 10MG FOUR TIMES PER DAY
     Route: 048
  8. DIAMICRON [Concomitant]
     Dosage: 80MG FOUR TIMES PER DAY
     Route: 048
  9. FLUANXOL [Concomitant]
     Dosage: .5MG PER DAY
     Route: 048
  10. AVANDIA [Concomitant]
     Dosage: 4MG PER DAY
     Route: 048
  11. COZAAR [Concomitant]
     Dosage: 50MG PER DAY
     Route: 048
  12. SERALIN [Concomitant]
     Dosage: 50MG PER DAY
     Route: 048
  13. BENERVA [Concomitant]
     Dosage: 300MG PER DAY
     Route: 048
  14. LORAZEPAM [Concomitant]
     Dosage: 1MG PER DAY
     Route: 048

REACTIONS (4)
  - HAEMATOMA [None]
  - HAEMORRHAGIC DIATHESIS [None]
  - LEUKOPENIA [None]
  - THROMBOCYTOPENIA [None]
